FAERS Safety Report 7970032-5 (Version None)
Quarter: 2011Q4

REPORT INFORMATION
  Report Type: 
  Country: None (occurrence: None)
  Receive Date: 20111212
  Receipt Date: 20111201
  Transmission Date: 20120403
  Serious: Yes (Hospitalization)
  Sender: FDA-Public Use
  Company Number: US-JNJFOC-20110701759

PATIENT
  Sex: Male
  Weight: 122.5 kg

DRUGS (28)
  1. SIMVASTATIN [Interacting]
     Indication: PRODUCT USED FOR UNKNOWN INDICATION
     Route: 048
     Dates: start: 20100902
  2. LIPITOR [Concomitant]
     Route: 048
     Dates: start: 20050101, end: 20100901
  3. BENADRYL [Concomitant]
     Indication: INSOMNIA
     Dates: start: 20090201
  4. HUMALOG [Concomitant]
     Indication: DIABETES MELLITUS
     Dates: start: 20100424
  5. LANTUS [Concomitant]
     Indication: DIABETES MELLITUS
     Dates: start: 20100424
  6. NYSTATIN [Concomitant]
     Indication: RASH
     Dates: start: 20100706
  7. COMPAZINE [Concomitant]
     Indication: NAUSEA
     Dates: start: 20100924
  8. ABIRATERONE ACETATE [Suspect]
     Indication: PROSTATE CANCER METASTATIC
     Route: 048
     Dates: start: 20110607, end: 20110619
  9. KLONOPIN [Concomitant]
     Indication: ANXIETY
     Dates: start: 20090817
  10. ACETAMINOPHEN [Concomitant]
     Indication: PAIN
     Dates: start: 20100924
  11. DEXTROSE 5% [Concomitant]
     Indication: DIARRHOEA
     Dates: start: 20110426, end: 20110426
  12. DEXAMETHASONE [Concomitant]
     Indication: BACK PAIN
     Dates: start: 20110426, end: 20110426
  13. ZOMETA [Concomitant]
     Indication: OSTEOPOROSIS PROPHYLAXIS
     Dates: start: 20050318
  14. HYDROCODONE [Concomitant]
     Indication: PAIN
     Dates: start: 20100924
  15. ECONAZOLE NITRATE [Concomitant]
     Indication: RASH
     Dates: start: 20100706
  16. SINEQUAN [Concomitant]
     Indication: DEPRESSION
     Dates: start: 20101013
  17. SIMVASTATIN [Interacting]
     Dosage: PRIOR TO 07-AUG-2007
     Route: 048
  18. LIPITOR [Concomitant]
     Indication: BLOOD CHOLESTEROL
     Route: 048
     Dates: start: 20100902
  19. PREDNISONE TAB [Suspect]
     Indication: PROSTATE CANCER METASTATIC
     Route: 065
     Dates: start: 20110315, end: 20110619
  20. ENOXAPARIN [Concomitant]
     Indication: OEDEMA PERIPHERAL
     Dates: start: 20110426, end: 20110427
  21. SODIUM CHLORIDE [Concomitant]
     Indication: DIARRHOEA
     Dates: start: 20110426, end: 20110427
  22. LASIX [Concomitant]
     Indication: FLUID RETENTION
     Dates: start: 20090817
  23. LOMOTIL [Concomitant]
     Indication: DIARRHOEA
     Dates: start: 20101104, end: 20110524
  24. MORPHINE SULFATE [Concomitant]
     Indication: BACK PAIN
     Dosage: PCA
     Dates: start: 20110426, end: 20110427
  25. LASIX [Concomitant]
     Indication: OEDEMA PERIPHERAL
     Dates: start: 20110426, end: 20110427
  26. ABIRATERONE ACETATE [Suspect]
     Route: 048
     Dates: start: 20110315
  27. IMODIUM [Concomitant]
     Indication: DIARRHOEA
     Dates: start: 20090324
  28. PROTONIX [Concomitant]
     Indication: DIARRHOEA
     Dates: start: 20110426, end: 20110427

REACTIONS (2)
  - DRUG INTERACTION [None]
  - RHABDOMYOLYSIS [None]
